FAERS Safety Report 8385166-3 (Version None)
Quarter: 2012Q2

REPORT INFORMATION
  Report Type: 
  Country: None (occurrence: None)
  Receive Date: 20120525
  Receipt Date: 20120522
  Transmission Date: 20120825
  Serious: Yes (Other)
  Sender: FDA-Public Use
  Company Number: DE-AMGEN-DEUSP2012028769

PATIENT
  Sex: Female
  Weight: 60 kg

DRUGS (6)
  1. LEVOTHYROXINE SODIUM [Concomitant]
     Indication: PRODUCT USED FOR UNKNOWN INDICATION
     Dosage: 25 MG, UNK
  2. CALCIUM 600+VITAMIN D3 400 [Concomitant]
     Dosage: UNK
     Dates: start: 20080101, end: 20120101
  3. ACTONEL [Concomitant]
     Dosage: UNK
     Dates: start: 20080101, end: 20120101
  4. PROLIA [Suspect]
     Indication: OSTEOPOROSIS
     Dosage: 60 MG, UNK
     Dates: start: 20120111
  5. AMLODIPINE BESYLATE [Concomitant]
     Indication: PRODUCT USED FOR UNKNOWN INDICATION
     Dosage: 5 MG, UNK
  6. SIMVASTATIN [Concomitant]
     Indication: PRODUCT USED FOR UNKNOWN INDICATION
     Dosage: 20 MG, UNK

REACTIONS (5)
  - ARTHRALGIA [None]
  - SKIN TIGHTNESS [None]
  - SURGERY [None]
  - DYSGEUSIA [None]
  - SWELLING [None]
